FAERS Safety Report 4696751-4 (Version None)
Quarter: 2005Q2

REPORT INFORMATION
  Report Type: 
  Country: None (occurrence: None)
  Receive Date: 20050620
  Receipt Date: 20050606
  Transmission Date: 20051028
  Serious: Yes (Hospitalization, Other)
  Sender: FDA-Public Use
  Company Number: 18837

PATIENT
  Age: 66 Year
  Sex: Female
  Weight: 64.8644 kg

DRUGS (1)
  1. DAUNORUBICIN HCL [Suspect]
     Indication: ACUTE MYELOID LEUKAEMIA
     Dosage: 45MG/M2 OTHER
     Route: 050
     Dates: start: 20050107

REACTIONS (3)
  - DIARRHOEA [None]
  - DIZZINESS [None]
  - MELAENA [None]
